FAERS Safety Report 24741107 (Version 1)
Quarter: 2024Q4

REPORT INFORMATION
  Report Type: Spontaneous
  Country: US (occurrence: US)
  Receive Date: 20241217
  Receipt Date: 20241217
  Transmission Date: 20250115
  Serious: No
  Sender: ALVOGEN
  Company Number: US-ALVOGEN-2024095559

PATIENT
  Sex: Female

DRUGS (4)
  1. FENTANYL [Suspect]
     Active Substance: FENTANYL
     Indication: Product used for unknown indication
     Dosage: 50 MCG?BOX 1
     Route: 062
     Dates: start: 202407
  2. FENTANYL [Suspect]
     Active Substance: FENTANYL
     Indication: Product used for unknown indication
     Dosage: 50 MCG?BOX 2
     Route: 062
     Dates: start: 202407
  3. FENTANYL [Suspect]
     Active Substance: FENTANYL
     Indication: Product used for unknown indication
     Dosage: EXPIRATION DATE: UU-JAN-2027?50 MCG?BOX 1 (SHIFTED ALL IN BOX 1)
     Route: 062
     Dates: start: 202409
  4. FENTANYL [Suspect]
     Active Substance: FENTANYL
     Indication: Product used for unknown indication
     Dosage: EXPIRATION DATE: UU-JAN-2027?50 MCG?BOX 2 (SHIFTED ALL IN BOX 1)
     Route: 062
     Dates: start: 202409

REACTIONS (5)
  - Device malfunction [Unknown]
  - Device adhesion issue [Unknown]
  - Incorrect dose administered by device [Unknown]
  - Product use issue [Unknown]
  - Wrong technique in device usage process [Unknown]

NARRATIVE: CASE EVENT DATE: 20240101
